FAERS Safety Report 8235287-0 (Version None)
Quarter: 2012Q1

REPORT INFORMATION
  Report Type: 
  Country: None (occurrence: None)
  Receive Date: 20120322
  Receipt Date: 20120314
  Transmission Date: 20120608
  Serious: Yes (Other)
  Sender: FDA-Public Use
  Company Number: 2012-0901

PATIENT
  Age: 60 Year
  Sex: Female

DRUGS (2)
  1. DYSPORT [Suspect]
     Indication: SKIN WRINKLING
     Dosage: 60 UNITS (60 UNITS, SINGLE CYCLE)
     Dates: start: 20120210, end: 20120210
  2. DYSPORT [Suspect]
     Indication: OFF LABEL USE
     Dosage: 60 UNITS (60 UNITS, SINGLE CYCLE)
     Dates: start: 20120210, end: 20120210

REACTIONS (5)
  - DEHYDRATION [None]
  - DIZZINESS [None]
  - PRODUCT RECONSTITUTION ISSUE [None]
  - PRESYNCOPE [None]
  - LOSS OF CONSCIOUSNESS [None]
